FAERS Safety Report 4388415-1 (Version None)
Quarter: 2004Q3

REPORT INFORMATION
  Report Type: 
  Country: None (occurrence: None)
  Receive Date: 20040701
  Receipt Date: 20040622
  Transmission Date: 20050211
  Serious: Yes (Hospitalization)
  Sender: FDA-Public Use
  Company Number: FR-ROCHE-371766

PATIENT
  Age: 76 Year
  Sex: Male

DRUGS (8)
  1. RIVOTRIL [Suspect]
     Route: 048
     Dates: start: 20040308, end: 20040316
  2. TINZAPARINE SODIQUE [Suspect]
     Indication: PULMONARY EMBOLISM
     Route: 048
  3. NEURONTIN [Suspect]
     Route: 048
     Dates: start: 20040309, end: 20040323
  4. NEURONTIN [Suspect]
     Route: 048
     Dates: start: 20040323
  5. ENOXAPARINE [Suspect]
     Indication: PHLEBITIS
     Route: 048
     Dates: start: 20040315, end: 20040316
  6. TARDYFERON B9 [Concomitant]
  7. NAFTIDROFURYL [Concomitant]
     Route: 048
  8. VALPROIC ACID [Concomitant]
     Route: 048

REACTIONS (1)
  - TOXIC SKIN ERUPTION [None]
